FAERS Safety Report 8544995-3 (Version None)
Quarter: 2012Q3

REPORT INFORMATION
  Report Type: 
  Country: None (occurrence: None)
  Receive Date: 20120727
  Receipt Date: 20120720
  Transmission Date: 20120928
  Serious: Yes (Death)
  Sender: FDA-Public Use
  Company Number: US-GLAXOSMITHKLINE-A0987105A

PATIENT
  Age: 57 Year
  Sex: Male

DRUGS (1)
  1. HYCAMTIN [Suspect]
     Indication: TRACHEAL CANCER
     Dosage: 4MG PER DAY
     Route: 048
     Dates: start: 20120319, end: 20120413

REACTIONS (1)
  - DEATH [None]
